FAERS Safety Report 5555972-9 (Version None)
Quarter: 2007Q4

REPORT INFORMATION
  Report Type: 
  Country: None (occurrence: None)
  Receive Date: 20071213
  Receipt Date: 20071203
  Transmission Date: 20080405
  Serious: Yes (Other)
  Sender: FDA-Public Use
  Company Number: FR-PFIZER INC-2007101976

PATIENT
  Age: 59 Year
  Sex: Female

DRUGS (3)
  1. TAHOR [Suspect]
     Route: 048
  2. STRONTIUM RANELATE [Concomitant]
  3. ALL OTHER THERAPEUTIC PRODUCTS [Concomitant]

REACTIONS (1)
  - PEMPHIGUS [None]
